FAERS Safety Report 22230401 (Version 1)
Quarter: 2023Q2

REPORT INFORMATION
  Report Type: Spontaneous
  Country: HK (occurrence: HK)
  Receive Date: 20230419
  Receipt Date: 20230419
  Transmission Date: 20230722
  Serious: Yes (Other)
  Sender: FDA-Public Use
  Company Number: HK-SIMCERE OF AMERICA, INC.-2023PRN00153

PATIENT
  Age: 13 Year
  Sex: Male

DRUGS (1)
  1. CELECOXIB [Suspect]
     Active Substance: CELECOXIB
     Indication: Medulloblastoma recurrent
     Dosage: UNK
     Dates: start: 202105

REACTIONS (2)
  - Pyloric stenosis [Recovered/Resolved]
  - Obstruction gastric [Recovered/Resolved]
